FAERS Safety Report 12954790 (Version 1)
Quarter: 2016Q4

REPORT INFORMATION
  Report Type: Spontaneous
  Country: US (occurrence: US)
  Receive Date: 20161117
  Receipt Date: 20161117
  Transmission Date: 20170207
  Serious: No
  Sender: FDA-Public Use
  Company Number: None

PATIENT
  Age: 15 Year
  Sex: Female
  Weight: 54.45 kg

DRUGS (1)
  1. ABILIFY [Suspect]
     Active Substance: ARIPIPRAZOLE
     Dosage: ?          OTHER FREQUENCY:QAM;?
     Route: 048
     Dates: start: 20161006, end: 20161007

REACTIONS (2)
  - Musculoskeletal stiffness [None]
  - Joint stiffness [None]

NARRATIVE: CASE EVENT DATE: 20161007
